FAERS Safety Report 6879996-4 (Version None)
Quarter: 2010Q3

REPORT INFORMATION
  Report Type: 
  Country: None (occurrence: None)
  Receive Date: 20100728
  Receipt Date: 20100716
  Transmission Date: 20110219
  Serious: Yes (Disabling, Other)
  Sender: FDA-Public Use
  Company Number: PHHY2010JP47224

PATIENT
  Sex: Female
  Weight: 44 kg

DRUGS (8)
  1. CO-DIOVAN T32564+FCTAB [Suspect]
     Indication: HYPERTENSION
     Dosage: 1 DF (80/6.25 MG) DAILY
     Route: 048
     Dates: start: 20090710, end: 20100319
  2. PURSENNID [Concomitant]
     Dosage: 24 MG
     Route: 048
     Dates: start: 20100212, end: 20100305
  3. CONIEL [Concomitant]
     Indication: HYPERTENSION
     Dosage: 4 MG
     Route: 048
     Dates: start: 20090710, end: 20100319
  4. ASPIRIN [Concomitant]
     Dosage: 100 MG
     Route: 048
     Dates: start: 20090710, end: 20100319
  5. CARTOL [Concomitant]
     Dosage: 0.5 UG
     Route: 048
     Dates: start: 20090710, end: 20100319
  6. MEVALOTIN [Concomitant]
     Dosage: 5 MG
     Route: 048
     Dates: start: 20090710, end: 20100319
  7. VANARL N [Concomitant]
     Dosage: 150 MG
     Route: 048
     Dates: start: 20100205, end: 20100319
  8. MAGLAX [Concomitant]
     Dosage: 1000 MG
     Route: 048
     Dates: start: 20100212, end: 20100319

REACTIONS (6)
  - AGNOSIA [None]
  - APHASIA [None]
  - CEREBRAL HAEMORRHAGE [None]
  - HYPOKALAEMIA [None]
  - HYPOTENSION [None]
  - SPINAL COMPRESSION FRACTURE [None]
